FAERS Safety Report 5297936-9 (Version None)
Quarter: 2007Q2

REPORT INFORMATION
  Report Type: 
  Country: None (occurrence: None)
  Receive Date: 20070416
  Receipt Date: 20070410
  Transmission Date: 20071010
  Serious: Yes (Life-Threatening, Hospitalization, Congenital Anomaly, Other)
  Sender: FDA-Public Use
  Company Number: GB-GLAXOSMITHKLINE-B0463691A

PATIENT
  Age: 7 Month
  Sex: Female
  Weight: 5 kg

DRUGS (3)
  1. COMBIVIR [Suspect]
     Indication: HIV INFECTION
     Dates: start: 20050901
  2. VIRAMUNE [Suspect]
     Indication: RETROVIRAL INFECTION
     Dosage: 400MG PER DAY
     Dates: start: 20050922, end: 20060509
  3. ZIDOVUDINE [Suspect]
     Dosage: 4MG TWICE PER DAY
     Dates: start: 20060701, end: 20060801

REACTIONS (4)
  - METABOLIC ACIDOSIS [None]
  - METHYLMALONIC ACIDURIA [None]
  - UNDERWEIGHT [None]
  - VITAMIN B12 DEFICIENCY [None]
